FAERS Safety Report 6984138-0 (Version None)
Quarter: 2010Q3

REPORT INFORMATION
  Report Type: 
  Country: None (occurrence: None)
  Receive Date: 20100915
  Receipt Date: 20090701
  Transmission Date: 20110219
  Serious: No
  Sender: FDA-Public Use
  Company Number: US-WYE-H10017809

PATIENT
  Age: 82 Year
  Sex: Female
  Weight: 68.1 kg

DRUGS (4)
  1. ADVIL LIQUI-GELS [Suspect]
     Indication: BACK PAIN
     Dosage: 2 CAPSULES AS NEEDED
     Route: 048
     Dates: start: 20090601, end: 20090630
  2. SYNTHROID [Concomitant]
  3. MULTI-VITAMINS [Concomitant]
  4. CELEXA [Concomitant]

REACTIONS (2)
  - INCORRECT DOSE ADMINISTERED [None]
  - VAGINAL HAEMORRHAGE [None]
